FAERS Safety Report 5917514-5 (Version None)
Quarter: 2008Q4

REPORT INFORMATION
  Report Type: 
  Country: None (occurrence: None)
  Receive Date: 20081010
  Receipt Date: 20081010
  Transmission Date: 20090506
  Serious: Yes (Other)
  Sender: FDA-Public Use
  Company Number: None

PATIENT
  Sex: Female

DRUGS (1)
  1. LISINOPRIL [Suspect]
     Dosage: 10MG QD PO
     Route: 048
     Dates: start: 20080925, end: 20081007

REACTIONS (3)
  - RASH [None]
  - SWELLING [None]
  - URTICARIA [None]
